FAERS Safety Report 14123893 (Version 1)
Quarter: 2017Q4

REPORT INFORMATION
  Report Type: Spontaneous
  Country: IN (occurrence: IN)
  Receive Date: 20171025
  Receipt Date: 20171025
  Transmission Date: 20180321
  Serious: Yes (Death, Other)
  Sender: FDA-Public Use
  Company Number: IN-CIPLA (EU) LIMITED-2017IN18548

PATIENT

DRUGS (8)
  1. ETOPOSIDE. [Suspect]
     Active Substance: ETOPOSIDE
     Indication: BREAST ANGIOSARCOMA
     Dosage: 50 MG, QD 3 WEEKS ON 3 WEEKS OFF
     Route: 048
  2. DOXORUBICIN [Suspect]
     Active Substance: DOXORUBICIN
     Indication: BREAST ANGIOSARCOMA
     Dosage: 30 UNK, WEEKLLY 3 TIMES
     Route: 065
  3. CELECOXIB. [Suspect]
     Active Substance: CELECOXIB
     Indication: BREAST ANGIOSARCOMA METASTATIC
     Dosage: 400 MG, BID
     Route: 065
  4. PROPRANOLOL [Concomitant]
     Active Substance: PROPRANOLOL HYDROCHLORIDE
     Indication: BREAST ANGIOSARCOMA
     Dosage: 40 MG, BID
     Route: 048
  5. ZOLEDRONIC ACID [Concomitant]
     Active Substance: ZOLEDRONIC ACID
     Dosage: 4 MG, UNK
     Route: 042
  6. CYCLOPHOSPHAMIDE. [Suspect]
     Active Substance: CYCLOPHOSPHAMIDE
     Indication: BREAST ANGIOSARCOMA
     Dosage: 100 MG, QD 3 WEEKS ON 3 WEEKS
     Route: 048
  7. PACLITAXEL. [Suspect]
     Active Substance: PACLITAXEL
     Indication: BREAST ANGIOSARCOMA
     Dosage: 60 GY/30#/6 WEEKS
     Route: 065
  8. THALIDOMIDE [Suspect]
     Active Substance: THALIDOMIDE
     Indication: BREAST ANGIOSARCOMA
     Dosage: 200 MG, QD
     Route: 048

REACTIONS (2)
  - Breast angiosarcoma metastatic [Fatal]
  - Disease progression [Unknown]
